FAERS Safety Report 8784172 (Version 1)
Quarter: 2012Q4

REPORT INFORMATION
  Report Type: Spontaneous
  Country: US (occurrence: None)
  Receive Date: 20120830
  Receipt Date: 20120830
  Transmission Date: 20130627
  Serious: Yes (Other)
  Sender: FDA-Public Use
  Company Number: 20120519

PATIENT
  Age: 58 Year
  Sex: Female

DRUGS (1)
  1. METHYLENE BLUE [Suspect]
     Indication: CECAL POLYP
     Dosage: SUBMUSCOSAL INJ. OF

REACTIONS (2)
  - Colitis [None]
  - Injection site reaction [None]
